FAERS Safety Report 8506847 (Version 2)
Quarter: 2013Q2

REPORT INFORMATION
  Report Type: Spontaneous
  Country: US (occurrence: US)
  Receive Date: 20120412
  Receipt Date: 20130401
  Transmission Date: 20140414
  Serious: No
  Sender: FDA-Public Use
  Company Number: US-ASTRAZENECA-2012SE15801

PATIENT
  Age: 59 Year
  Sex: Male

DRUGS (1)
  1. NEXIUM [Suspect]
     Dosage: GENERIC
     Route: 048

REACTIONS (5)
  - Dyspepsia [Unknown]
  - Chronic obstructive pulmonary disease [Unknown]
  - Malaise [Unknown]
  - Abdominal pain upper [Unknown]
  - Diarrhoea [Unknown]
